FAERS Safety Report 16357552 (Version 1)
Quarter: 2019Q2

REPORT INFORMATION
  Report Type: Spontaneous
  Country: NG (occurrence: NG)
  Receive Date: 20190527
  Receipt Date: 20190527
  Transmission Date: 20190711
  Serious: Yes (Hospitalization, Other)
  Sender: FDA-Public Use
  Company Number: NG-MACLEODS PHARMACEUTICALS US LTD-MAC2019021413

PATIENT

DRUGS (4)
  1. TRAMADOL HYDROCHLORIDE. [Suspect]
     Active Substance: TRAMADOL HYDROCHLORIDE
     Dosage: 300 MILLIGRAM, QD, TAKING TRAMADOL FOR OVER THREE MONTHS BEFORE PRESENTATION
     Route: 065
     Dates: start: 2017, end: 2017
  2. TRAMADOL HYDROCHLORIDE. [Suspect]
     Active Substance: TRAMADOL HYDROCHLORIDE
     Indication: INAPPROPRIATE AFFECT
     Dosage: 100 MILLIGRAM, TAKING TRAMADOL FOR OVER THREE MONTHS BEFORE PRESENTATION
     Route: 065
     Dates: start: 2017, end: 2017
  3. TRAMADOL HYDROCHLORIDE. [Suspect]
     Active Substance: TRAMADOL HYDROCHLORIDE
     Dosage: UNK, QD, INCREASED IT GRADUALLY, TAKING TRAMADOL FOR OVER THREE MONTHS
     Route: 065
     Dates: start: 2017, end: 2017
  4. TRAMADOL HYDROCHLORIDE. [Suspect]
     Active Substance: TRAMADOL HYDROCHLORIDE
     Dosage: 800 MILLIGRAM, 800 MG OF TRAMADOL IN THE MORNING,
     Route: 065
     Dates: start: 2017, end: 2017

REACTIONS (11)
  - Contusion [Unknown]
  - Loss of consciousness [Recovered/Resolved]
  - Eye swelling [Unknown]
  - Restlessness [Unknown]
  - Intentional product misuse [Unknown]
  - Toxicity to various agents [Unknown]
  - Fall [Unknown]
  - Intentional overdose [Unknown]
  - Eye injury [Unknown]
  - Speech disorder [Unknown]
  - Syncope [Unknown]

NARRATIVE: CASE EVENT DATE: 2017
